FAERS Safety Report 12583622 (Version 1)
Quarter: 2016Q3

REPORT INFORMATION
  Report Type: Spontaneous
  Country: US (occurrence: US)
  Receive Date: 20160722
  Receipt Date: 20160722
  Transmission Date: 20161109
  Serious: No
  Sender: FDA-Public Use
  Company Number: US-009507513-1606USA013550

PATIENT
  Sex: Female

DRUGS (2)
  1. PROCARDIA XL [Suspect]
     Active Substance: NIFEDIPINE
     Dosage: 1 DF, QD
  2. LISINOPRIL. [Suspect]
     Active Substance: LISINOPRIL
     Indication: COUGH

REACTIONS (1)
  - Cough [Recovered/Resolved]
